FAERS Safety Report 5339846-4 (Version None)
Quarter: 2007Q2

REPORT INFORMATION
  Report Type: 
  Country: None (occurrence: None)
  Receive Date: 20070529
  Receipt Date: 20070510
  Transmission Date: 20071010
  Serious: Yes (Hospitalization, Disabling, Other)
  Sender: FDA-Public Use
  Company Number: 163-21880-07031571

PATIENT
  Age: 85 Year
  Sex: Female

DRUGS (4)
  1. REVLIMID [Suspect]
     Indication: MULTIPLE MYELOMA
     Dosage: 5 MG; 10 MG, 1 IN 1 D, ORAL
     Route: 048
     Dates: start: 20070310, end: 20070327
  2. REVLIMID [Suspect]
     Indication: MYELODYSPLASTIC SYNDROME
     Dosage: 5 MG; 10 MG, 1 IN 1 D, ORAL
     Route: 048
     Dates: start: 20070310, end: 20070327
  3. REVLIMID [Suspect]
     Indication: MULTIPLE MYELOMA
     Dosage: 5 MG; 10 MG, 1 IN 1 D, ORAL
     Route: 048
     Dates: start: 20070101
  4. REVLIMID [Suspect]
     Indication: MYELODYSPLASTIC SYNDROME
     Dosage: 5 MG; 10 MG, 1 IN 1 D, ORAL
     Route: 048
     Dates: start: 20070101

REACTIONS (6)
  - ABASIA [None]
  - ASTHENIA [None]
  - BLOOD BILIRUBIN INCREASED [None]
  - DIARRHOEA [None]
  - JAUNDICE [None]
  - PANCYTOPENIA [None]
